FAERS Safety Report 25514135 (Version 1)
Quarter: 2025Q3

REPORT INFORMATION
  Report Type: Spontaneous
  Country: CN (occurrence: CN)
  Receive Date: 20250703
  Receipt Date: 20250703
  Transmission Date: 20251020
  Serious: Yes (Hospitalization)
  Sender: NOVARTIS
  Company Number: CN-002147023-NVSC2025CN103973

PATIENT
  Age: 69 Year
  Sex: Female
  Weight: 45 kg

DRUGS (3)
  1. DEFERASIROX [Suspect]
     Active Substance: DEFERASIROX
     Indication: Iron overload
     Dosage: 800.000 MG, QD
     Route: 048
     Dates: start: 20250505, end: 20250526
  2. DEFERASIROX [Suspect]
     Active Substance: DEFERASIROX
     Indication: Overchelation
  3. DEFERASIROX [Suspect]
     Active Substance: DEFERASIROX
     Indication: Myelodysplastic syndrome

REACTIONS (4)
  - Blood creatinine increased [Recovering/Resolving]
  - Dizziness [Unknown]
  - Asthenia [Unknown]
  - Chest discomfort [Unknown]

NARRATIVE: CASE EVENT DATE: 20250526
